FAERS Safety Report 4684214-1 (Version None)
Quarter: 2005Q2

REPORT INFORMATION
  Report Type: 
  Country: None (occurrence: None)
  Receive Date: 20050531
  Receipt Date: 20050404
  Transmission Date: 20051028
  Serious: Yes (Death, Life-Threatening, Hospitalization, Other)
  Sender: FDA-Public Use
  Company Number: US_0412108775

PATIENT
  Age: 41 Year
  Sex: Male

DRUGS (1)
  1. ZYPREXA [Suspect]
     Dosage: 12.5 MG
     Dates: start: 20000310, end: 20040512

REACTIONS (1)
  - DIABETES MELLITUS [None]
